FAERS Safety Report 5622643-X (Version None)
Quarter: 2008Q1

REPORT INFORMATION
  Report Type: 
  Country: None (occurrence: None)
  Receive Date: 20080212
  Receipt Date: 20080201
  Transmission Date: 20080703
  Serious: Yes (Hospitalization)
  Sender: FDA-Public Use
  Company Number: AU-WYE-G00859108

PATIENT
  Age: 69 Year
  Sex: Male

DRUGS (4)
  1. EFFEXOR XR [Suspect]
     Indication: ANXIETY DISORDER
     Dosage: UNKNOWN
     Route: 048
     Dates: start: 19950101
  2. EFFEXOR XR [Suspect]
     Dosage: 450 MG DAILY MANE
     Route: 048
  3. CARBAMAZEPINE [Concomitant]
     Indication: TRIGEMINAL NEURALGIA
     Dosage: 400 MG DAILY
     Route: 048
  4. OLANZAPINE [Suspect]
     Indication: ANXIETY
     Dosage: 5 MG DAILY
     Route: 048
     Dates: start: 19950101

REACTIONS (3)
  - BLOOD CHOLESTEROL INCREASED [None]
  - HYPERTRIGLYCERIDAEMIA [None]
  - PANCREATITIS [None]
